FAERS Safety Report 6655775-8 (Version None)
Quarter: 2010Q1

REPORT INFORMATION
  Report Type: 
  Country: None (occurrence: None)
  Receive Date: 20100317
  Receipt Date: 20100104
  Transmission Date: 20100710
  Serious: No
  Sender: FDA-Public Use
  Company Number: DSA_42283_2010

PATIENT
  Sex: Female

DRUGS (6)
  1. XENAZINE [Suspect]
     Indication: CHOREA
     Dosage: 12.5 MG TID ORAL, 12.5 MG, DF ORAL
     Route: 048
     Dates: start: 20090824
  2. DOMPERIDONE [Concomitant]
  3. INSULIN [Concomitant]
  4. SIMVASTATIN [Concomitant]
  5. LISINOPRIL [Concomitant]
  6. ASPIRIN [Concomitant]

REACTIONS (7)
  - HYPERSOMNIA [None]
  - INSOMNIA [None]
  - MUSCULOSKELETAL CHEST PAIN [None]
  - NAUSEA [None]
  - NECK PAIN [None]
  - TACHYPHRENIA [None]
  - VOMITING [None]
